FAERS Safety Report 8956831 (Version 2)
Quarter: 2013Q2

REPORT INFORMATION
  Report Type: Spontaneous
  Country: NL (occurrence: NL)
  Receive Date: 20121211
  Receipt Date: 20130412
  Transmission Date: 20140414
  Serious: Yes (Death)
  Sender: FDA-Public Use
  Company Number: NL-MERCK-1212NLD003216

PATIENT
  Age: 50 Year
  Sex: Male

DRUGS (2)
  1. VICTRELIS [Suspect]
     Route: 048
  2. PEGINTRON [Suspect]
     Route: 058

REACTIONS (2)
  - Cardiomyopathy [Fatal]
  - Myocarditis [Fatal]
